FAERS Safety Report 10241771 (Version 1)
Quarter: 2014Q2

REPORT INFORMATION
  Report Type: Spontaneous
  Country: US (occurrence: None)
  Receive Date: 20140613
  Receipt Date: 20140613
  Transmission Date: 20141212
  Serious: Yes (Hospitalization)
  Sender: FDA-Public Use
  Company Number: UNT-2014-001446

PATIENT
  Age: 59 Year
  Sex: Female

DRUGS (5)
  1. REMODULIN (TREPROSTINIL SODIUM) INJECTION, 5MG/ML [Suspect]
     Indication: PULMONARY ARTERIAL HYPERTENSION
     Route: 041
     Dates: start: 20100703
  2. COUMADIN /00014802/ (WARFARIN SODIUM) [Concomitant]
  3. REVATIO (SILDENAFIL CITRATE) [Concomitant]
  4. TRACLEER /01587701/ (BOSENTAN) [Concomitant]
  5. OPSUMIT (MACITENTAN) [Concomitant]

REACTIONS (2)
  - Device leakage [None]
  - Drug dose omission [None]
